FAERS Safety Report 24879130 (Version 1)
Quarter: 2025Q1

REPORT INFORMATION
  Report Type: Spontaneous
  Country: US (occurrence: US)
  Receive Date: 20250123
  Receipt Date: 20250123
  Transmission Date: 20250408
  Serious: No
  Sender: Haleon PLC
  Company Number: US-HALEON-2224741

PATIENT

DRUGS (2)
  1. NICORETTE ORIGINAL [Suspect]
     Active Substance: NICOTINE
     Indication: Product used for unknown indication
  2. NICORETTE ORIGINAL [Suspect]
     Active Substance: NICOTINE
     Dates: start: 20250122

REACTIONS (2)
  - Tobacco poisoning [Unknown]
  - Accidental exposure to product [Unknown]

NARRATIVE: CASE EVENT DATE: 20250122
